FAERS Safety Report 6849079-8 (Version None)
Quarter: 2010Q3

REPORT INFORMATION
  Report Type: 
  Country: None (occurrence: None)
  Receive Date: 20100716
  Receipt Date: 20071030
  Transmission Date: 20110219
  Serious: No
  Sender: FDA-Public Use
  Company Number: US-PFIZER INC-2007080775

PATIENT
  Sex: Female
  Weight: 105 kg

DRUGS (11)
  1. CHANTIX [Suspect]
     Indication: SMOKING CESSATION THERAPY
     Dates: start: 20070701
  2. CHANTIX [Suspect]
     Indication: TOBACCO ABUSE
  3. ATENOLOL [Concomitant]
  4. WARFARIN SODIUM [Concomitant]
  5. FISH OIL [Concomitant]
  6. VITAMINS [Concomitant]
  7. ATENOLOL AND CHLORTHALIDONE [Concomitant]
  8. CENTRUM SILVER [Concomitant]
  9. LEXAPRO [Concomitant]
  10. POTASSIUM CHLORIDE [Concomitant]
  11. VITAMIN C [Concomitant]

REACTIONS (6)
  - ALANINE AMINOTRANSFERASE INCREASED [None]
  - ASPARTATE AMINOTRANSFERASE INCREASED [None]
  - BLOOD GLUCOSE INCREASED [None]
  - BLOOD POTASSIUM DECREASED [None]
  - DRUG LEVEL INCREASED [None]
  - NAUSEA [None]
